APPROVED DRUG PRODUCT: ESTRADIOL
Active Ingredient: ESTRADIOL
Strength: 0.1% (0.75GM/PACKET)
Dosage Form/Route: GEL;TRANSDERMAL
Application: A216524 | Product #003 | TE Code: AB
Applicant: PADAGIS ISRAEL PHARMACEUTICALS LTD
Approved: Nov 14, 2023 | RLD: No | RS: No | Type: RX